FAERS Safety Report 14352704 (Version 4)
Quarter: 2018Q1

REPORT INFORMATION
  Report Type: Spontaneous
  Country: US (occurrence: US)
  Receive Date: 20180104
  Receipt Date: 20180326
  Transmission Date: 20180509
  Serious: No
  Sender: FDA-Public Use
  Company Number: US-PFIZER INC-2017548616

PATIENT
  Age: 59 Year
  Sex: Female

DRUGS (4)
  1. IBRANCE [Suspect]
     Active Substance: PALBOCICLIB
     Dosage: UNK
  2. XGEVA [Concomitant]
     Active Substance: DENOSUMAB
     Dosage: UNK, MONTHLY (SHOT ONE A MONTH)
  3. IBRANCE [Suspect]
     Active Substance: PALBOCICLIB
     Indication: BREAST CANCER METASTATIC
     Dosage: 125 MG, UNK
     Dates: start: 20170725
  4. LETROZOLE. [Concomitant]
     Active Substance: LETROZOLE
     Dosage: UNK (DOING WELL)

REACTIONS (9)
  - Hot flush [Unknown]
  - Glossodynia [Unknown]
  - Alopecia [Unknown]
  - Back pain [Unknown]
  - Drug dose omission [Unknown]
  - White blood cell count decreased [Unknown]
  - Neutrophil count decreased [Unknown]
  - Trigger finger [Unknown]
  - Fatigue [Unknown]

NARRATIVE: CASE EVENT DATE: 2017
